FAERS Safety Report 11050992 (Version 1)
Quarter: 2015Q2

REPORT INFORMATION
  Report Type: Spontaneous
  Country: US (occurrence: US)
  Receive Date: 20150421
  Receipt Date: 20150421
  Transmission Date: 20150821
  Serious: Yes (Other)
  Sender: FDA-Public Use
  Company Number: US-BAYER-2015-134426

PATIENT
  Age: 36 Year
  Sex: Female

DRUGS (1)
  1. SAFYRAL [Suspect]
     Active Substance: DROSPIRENONE\ETHINYL ESTRADIOL\LEVOMEFOLATE CALCIUM
     Indication: GENITAL HAEMORRHAGE
     Dosage: UNK
     Dates: start: 20150407, end: 20150410

REACTIONS (9)
  - Off label use [None]
  - Gait deviation [None]
  - Speech disorder [None]
  - Tremor [None]
  - Emotional distress [None]
  - Chest discomfort [None]
  - Yellow skin [None]
  - Dizziness [None]
  - Product use issue [None]

NARRATIVE: CASE EVENT DATE: 20150407
